FAERS Safety Report 8532454-3 (Version None)
Quarter: 2012Q3

REPORT INFORMATION
  Report Type: 
  Country: None (occurrence: None)
  Receive Date: 20120716
  Receipt Date: 20120716
  Transmission Date: 20120928
  Serious: Yes (Other)
  Sender: FDA-Public Use
  Company Number: None

PATIENT
  Age: 25 Year
  Sex: Female
  Weight: 68.0396 kg

DRUGS (1)
  1. SUMATRIPTAN [Suspect]
     Indication: MIGRAINE
     Dosage: 1 100MG TABLET AS NEEDED UP TO 2X PO
     Route: 048
     Dates: start: 20050101, end: 20120715

REACTIONS (1)
  - PAIN THRESHOLD DECREASED [None]
